FAERS Safety Report 13703355 (Version 1)
Quarter: 2017Q2

REPORT INFORMATION
  Report Type: Spontaneous
  Country: US (occurrence: US)
  Receive Date: 20170629
  Receipt Date: 20170629
  Transmission Date: 20170830
  Serious: No
  Sender: FDA-Public Use
  Company Number: US-BRISTOL-MYERS SQUIBB COMPANY-BMS-2017-056122

PATIENT
  Age: 80 Year
  Sex: Female

DRUGS (1)
  1. ELIQUIS [Suspect]
     Active Substance: APIXABAN
     Indication: ATRIOVENTRICULAR BLOCK
     Dosage: 5 MG, BID
     Route: 048
     Dates: start: 201612

REACTIONS (2)
  - Product use in unapproved indication [Unknown]
  - Palpitations [Unknown]
